FAERS Safety Report 4405156-2 (Version None)
Quarter: 2004Q3

REPORT INFORMATION
  Report Type: 
  Country: None (occurrence: None)
  Receive Date: 20040723
  Receipt Date: 20031020
  Transmission Date: 20050211
  Serious: Yes (Other)
  Sender: FDA-Public Use
  Company Number: US-BRISTOL-MYERS SQUIBB COMPANY-12415329

PATIENT
  Age: 58 Year
  Sex: Male

DRUGS (4)
  1. MAXIPIME [Suspect]
  2. DIPRIVAN [Concomitant]
  3. CELLCEPT [Concomitant]
  4. SANDIMMUNE [Concomitant]

REACTIONS (1)
  - CONVULSION [None]
